FAERS Safety Report 5911908-X (Version None)
Quarter: 2008Q4

REPORT INFORMATION
  Report Type: 
  Country: None (occurrence: None)
  Receive Date: 20081006
  Receipt Date: 20080922
  Transmission Date: 20090506
  Serious: Yes (Hospitalization)
  Sender: FDA-Public Use
  Company Number: 230645J08CAN

PATIENT
  Sex: Female

DRUGS (1)
  1. REBIF [Suspect]
     Indication: RELAPSING-REMITTING MULTIPLE SCLEROSIS
     Dosage: 44 MCG, 3 IN 1 WEEKS, SUBCUTANEOUS  44 MCG, 3 IN WEEKS, SUBCUTANEOUS
     Route: 058
     Dates: start: 20060405

REACTIONS (6)
  - ARRHYTHMIA [None]
  - DIARRHOEA [None]
  - INJECTION SITE MASS [None]
  - INJECTION SITE SCAB [None]
  - PYREXIA [None]
  - WHITE BLOOD CELL COUNT DECREASED [None]
